FAERS Safety Report 24287907 (Version 1)
Quarter: 2024Q3

REPORT INFORMATION
  Report Type: Spontaneous
  Country: US (occurrence: None)
  Receive Date: 20240905
  Receipt Date: 20240905
  Transmission Date: 20241017
  Serious: No
  Sender: Public
  Company Number: None

PATIENT
  Sex: 0

DRUGS (1)
  1. TYMLOS [Suspect]
     Active Substance: ABALOPARATIDE
     Indication: Osteoporosis
     Dosage: OTHER QUANTITY : 1 INJECTION(S);?FREQUENCY : AT BEDTIME;?OTHER ROUTE : INJECTION;?
     Route: 050
     Dates: start: 20240701, end: 20240814

REACTIONS (2)
  - Weight increased [None]
  - Body fat disorder [None]

NARRATIVE: CASE EVENT DATE: 20240814
